FAERS Safety Report 17487951 (Version 1)
Quarter: 2020Q1

REPORT INFORMATION
  Report Type: Spontaneous
  Country: US (occurrence: US)
  Receive Date: 20200303
  Receipt Date: 20200303
  Transmission Date: 20200409
  Serious: No
  Sender: FDA-Public Use
  Company Number: US-PFIZER INC-2019288811

PATIENT
  Age: 57 Year
  Sex: Male

DRUGS (3)
  1. SUTENT [Suspect]
     Active Substance: SUNITINIB MALATE
     Indication: NEOPLASM MALIGNANT
  2. SUTENT [Suspect]
     Active Substance: SUNITINIB MALATE
     Indication: IRON DEFICIENCY ANAEMIA
  3. SUTENT [Suspect]
     Active Substance: SUNITINIB MALATE
     Indication: NEOPLASM MALIGNANT
     Dosage: 37.5 MG, (1 TAB EVERY DAILY 4 WEEKS ON 2 WEEKS OFF)
     Route: 048

REACTIONS (1)
  - Mood altered [Unknown]
